FAERS Safety Report 13793045 (Version 1)
Quarter: 2017Q3

REPORT INFORMATION
  Report Type: Spontaneous
  Country: US (occurrence: US)
  Receive Date: 20170726
  Receipt Date: 20170726
  Transmission Date: 20171127
  Serious: No
  Sender: FDA-Public Use
  Company Number: GXBR2017US000905

PATIENT
  Sex: Female
  Weight: 87.98 kg

DRUGS (3)
  1. LOSARTAN. [Concomitant]
     Active Substance: LOSARTAN
     Indication: BLOOD PRESSURE MEASUREMENT
     Dosage: 100 MG, QD
     Route: 048
  2. CHOLESTYRAMINE FOR ORAL SUSPENSION USP [Suspect]
     Active Substance: CHOLESTYRAMINE
     Indication: BLOOD CHOLESTEROL
     Dosage: 4 G, QD
     Route: 048
     Dates: start: 20170124
  3. PREMARIN [Concomitant]
     Active Substance: ESTROGENS, CONJUGATED
     Indication: BLOOD OESTROGEN
     Dosage: 1 G, QW
     Route: 061

REACTIONS (2)
  - Nausea [Unknown]
  - Constipation [Unknown]
